FAERS Safety Report 4623188-6 (Version None)
Quarter: 2005Q1

REPORT INFORMATION
  Report Type: 
  Country: None (occurrence: None)
  Receive Date: 20050330
  Receipt Date: 20050323
  Transmission Date: 20050727
  Serious: Yes (Other)
  Sender: FDA-Public Use
  Company Number: PHBS2005JP04268

PATIENT
  Age: 7 Year
  Sex: Female

DRUGS (2)
  1. TOFRANIL [Suspect]
     Indication: ENURESIS
     Dosage: 25 MG/D
     Route: 048
     Dates: start: 20020501
  2. BUP-4 [Suspect]
     Dosage: 10 MG/D
     Route: 048
     Dates: start: 20020501

REACTIONS (3)
  - DEAFNESS [None]
  - DEAFNESS UNILATERAL [None]
  - TINNITUS [None]
